FAERS Safety Report 6078556-5 (Version None)
Quarter: 2009Q1

REPORT INFORMATION
  Report Type: 
  Country: None (occurrence: None)
  Receive Date: 20090212
  Receipt Date: 20090130
  Transmission Date: 20090719
  Serious: Yes (Life-Threatening)
  Sender: FDA-Public Use
  Company Number: 2009AL000652

PATIENT
  Age: 52 Year
  Sex: Female

DRUGS (7)
  1. DICLOFENAC SODIUM [Suspect]
     Indication: ANALGESIA
     Dosage: 75 MG, IV
     Route: 042
     Dates: start: 20081231, end: 20081231
  2. PAREGORIC LIQUID USP (ALPHARMA) (PAREGORIC LIQUID USP (ALPHARMA) [Suspect]
     Indication: ANALGESIA
     Dosage: 4 MG; IV
     Route: 042
     Dates: start: 20081231, end: 20081231
  3. FENTANYL TRANSDERMAL SYSTEM [Suspect]
     Indication: ANALGESIA
     Dosage: 100 MCG; IV
     Route: 042
     Dates: start: 20081231, end: 20081231
  4. ATRACURIUM [Concomitant]
  5. DEXAMETHASONE TAB [Concomitant]
  6. PROPOFOL-ICI [Concomitant]
  7. ONDANSETRON [Concomitant]

REACTIONS (3)
  - BRADYCARDIA [None]
  - ELECTROMECHANICAL DISSOCIATION [None]
  - OXYGEN SATURATION DECREASED [None]
